FAERS Safety Report 8602424-5 (Version None)
Quarter: 2012Q3

REPORT INFORMATION
  Report Type: 
  Country: None (occurrence: None)
  Receive Date: 20120817
  Receipt Date: 20120810
  Transmission Date: 20120928
  Serious: Yes (Other)
  Sender: FDA-Public Use
  Company Number: US-ASTRAZENECA-2012SE56600

PATIENT

DRUGS (1)
  1. PROPOFOL [Suspect]

REACTIONS (2)
  - SKIN NECROSIS [None]
  - EXTRAVASATION [None]
